FAERS Safety Report 18341060 (Version 3)
Quarter: 2020Q4

REPORT INFORMATION
  Report Type: Spontaneous
  Country: SK (occurrence: SK)
  Receive Date: 20201003
  Receipt Date: 20201123
  Transmission Date: 20210113
  Serious: Yes (Hospitalization, Other)
  Sender: FDA-Public Use
  Company Number: NVSC2020SK259633

PATIENT
  Age: 68 Year
  Sex: Female

DRUGS (4)
  1. LEVODOPA [Suspect]
     Active Substance: LEVODOPA
     Indication: GAIT DISTURBANCE
     Dosage: 300 MG
     Route: 065
  2. QUETIAPINE. [Suspect]
     Active Substance: QUETIAPINE
     Dosage: 100 MG, QD
     Route: 065
  3. ROPINIROLE. [Suspect]
     Active Substance: ROPINIROLE
     Indication: PARKINSON^S DISEASE
     Dosage: 8 MG
     Route: 065
  4. QUETIAPINE. [Suspect]
     Active Substance: QUETIAPINE
     Indication: ACUTE PSYCHOSIS
     Dosage: 62.5 MG, QD
     Route: 065

REACTIONS (7)
  - Hallucination, visual [Recovered/Resolved]
  - Parkinson^s disease psychosis [Recovered/Resolved]
  - Acute psychosis [Recovered/Resolved]
  - Product use in unapproved indication [Unknown]
  - Delusion [Recovered/Resolved]
  - Asymptomatic bacteriuria [Recovered/Resolved]
  - Hallucination, auditory [Not Recovered/Not Resolved]
